FAERS Safety Report 10442234 (Version 1)
Quarter: 2014Q3

REPORT INFORMATION
  Report Type: Spontaneous
  Country: DE (occurrence: DE)
  Receive Date: 20140909
  Receipt Date: 20140909
  Transmission Date: 20150326
  Serious: Yes (Other)
  Sender: FDA-Public Use
  Company Number: DE-PFIZER INC-2014246818

PATIENT
  Age: 21 Year
  Sex: Female
  Weight: 56 kg

DRUGS (4)
  1. TAVOR [Suspect]
     Active Substance: LORAZEPAM
     Indication: DEPRESSION
     Dosage: 0.5 MG, 1X/DAY (0. - 10.3. GESTATIONAL WEEK)
     Route: 048
     Dates: start: 20120603, end: 20120815
  2. TREVILOR RETARD [Suspect]
     Active Substance: VENLAFAXINE HYDROCHLORIDE
     Indication: DEPRESSION
     Dosage: 75 MG, 1X/DAY (2.5. - 10.3. GESTATIONAL WEEK)
     Route: 048
     Dates: start: 20120622, end: 20120815
  3. MIRTAZAPINE. [Suspect]
     Active Substance: MIRTAZAPINE
     Indication: DEPRESSION
     Dosage: 45 MG, 1X/DAY (0. - 41.3. GESTATIONAL WEEK)
     Route: 048
     Dates: start: 20120603, end: 20130320
  4. FOLIC ACID. [Concomitant]
     Active Substance: FOLIC ACID
     Indication: PROPHYLAXIS OF NEURAL TUBE DEFECT
     Dosage: 1.5. - 19.1. GESTATIONAL WEEK
     Route: 048
     Dates: start: 20120615, end: 20121015

REACTIONS (5)
  - Premature rupture of membranes [Unknown]
  - Obstructed labour [Recovered/Resolved]
  - Off label use [Recovered/Resolved]
  - Affect lability [Unknown]
  - Pyelocaliectasis [Unknown]

NARRATIVE: CASE EVENT DATE: 20120603
